FAERS Safety Report 4970954-3 (Version None)
Quarter: 2006Q2

REPORT INFORMATION
  Report Type: 
  Country: None (occurrence: None)
  Receive Date: 20060411
  Receipt Date: 20060411
  Transmission Date: 20061013
  Serious: Yes (Hospitalization)
  Sender: FDA-Public Use
  Company Number: None

PATIENT
  Age: 48 Year
  Sex: Male
  Weight: 87.5 kg

DRUGS (1)
  1. ZAROXOLYN [Suspect]

REACTIONS (2)
  - HYPOKALAEMIA [None]
  - SYNCOPE [None]
